FAERS Safety Report 8365906-X (Version None)
Quarter: 2012Q2

REPORT INFORMATION
  Report Type: 
  Country: None (occurrence: None)
  Receive Date: 20120515
  Receipt Date: 20120503
  Transmission Date: 20120825
  Serious: Yes (Hospitalization)
  Sender: FDA-Public Use
  Company Number: AUR-APL-2012-02117

PATIENT
  Age: 34 Year
  Sex: Male

DRUGS (4)
  1. LAMOTRIGINE [Suspect]
     Indication: GRAND MAL CONVULSION
     Dosage: ORAL
     Route: 048
     Dates: start: 20120213, end: 20120409
  2. ACETAMINOPHEN [Concomitant]
  3. ALBUTEROL SULFATE [Concomitant]
  4. LEVETIRACETAM [Concomitant]

REACTIONS (10)
  - SWELLING FACE [None]
  - MOUTH ULCERATION [None]
  - CONJUNCTIVAL IRRITATION [None]
  - PAIN [None]
  - INFLUENZA LIKE ILLNESS [None]
  - EYELID OEDEMA [None]
  - HEPATITIS [None]
  - OROPHARYNGEAL PAIN [None]
  - ANGIOEDEMA [None]
  - DRUG RASH WITH EOSINOPHILIA AND SYSTEMIC SYMPTOMS [None]
